FAERS Safety Report 5939413-5 (Version None)
Quarter: 2008Q4

REPORT INFORMATION
  Report Type: 
  Country: None (occurrence: None)
  Receive Date: 20081103
  Receipt Date: 20081022
  Transmission Date: 20090506
  Serious: Yes (Other)
  Sender: FDA-Public Use
  Company Number: GB-PFIZER INC-2008091779

PATIENT
  Age: 66 Year
  Sex: Male

DRUGS (2)
  1. NICOTINE [Suspect]
     Indication: SMOKING CESSATION THERAPY
     Dosage: FREQ:AS NEEDED
     Route: 055
  2. SPIRIVA [Concomitant]
     Indication: EMPHYSEMA
     Route: 055

REACTIONS (2)
  - INFLAMMATION [None]
  - LYMPHADENOPATHY [None]
